FAERS Safety Report 8036669-2 (Version None)
Quarter: 2012Q1

REPORT INFORMATION
  Report Type: 
  Country: None (occurrence: None)
  Receive Date: 20120111
  Receipt Date: 20120105
  Transmission Date: 20120608
  Serious: Yes (Other)
  Sender: FDA-Public Use
  Company Number: BR-PFIZER INC-2012004187

PATIENT
  Age: 68 Year
  Sex: Female
  Weight: 72 kg

DRUGS (4)
  1. ATORVASTATIN CALCIUM [Concomitant]
     Indication: BLOOD CHOLESTEROL
     Dosage: 20 MG, 1X/DAY (1 TABLET DAILY)
  2. METFORMIN [Concomitant]
     Indication: LIVER DISORDER
     Dosage: 425 MG, 2X/DAY (HALF TABLET IN THE MORNING AND HALF TABLET AT NIGHT)
  3. CALCIUM [Concomitant]
     Indication: BONE DISORDER
     Dosage: UNK
  4. LYRICA [Suspect]
     Indication: FIBROMYALGIA
     Dosage: 75 MG (1 CAPSULE), UNSPECIFIED FREQUENCY
     Route: 048
     Dates: start: 20120104, end: 20120105

REACTIONS (3)
  - LARYNGEAL OEDEMA [None]
  - GAIT DISTURBANCE [None]
  - DIZZINESS [None]
